FAERS Safety Report 10598301 (Version 3)
Quarter: 2015Q1

REPORT INFORMATION
  Report Type: Spontaneous
  Country: JP (occurrence: None)
  Receive Date: 20141119
  Receipt Date: 20150122
  Transmission Date: 20150720
  Serious: Yes (Hospitalization)
  Sender: FDA-Public Use
  Company Number: 2014-003312

PATIENT
  Age: 48 Year
  Sex: Female

DRUGS (2)
  1. PREDONINE /00016201/  (PREDNISOLONE) [Concomitant]
  2. BENET (RISEDRONATE SODIUM)TABLET, UNKMG [Suspect]
     Active Substance: RISEDRONATE SODIUM
     Route: 048

REACTIONS (12)
  - Low turnover osteopathy [None]
  - Femur fracture [None]
  - Fall [None]
  - Gait disturbance [None]
  - Bone disorder [None]
  - Injury associated with device [None]
  - Post procedural complication [None]
  - Atypical femur fracture [None]
  - Bone graft [None]
  - Fracture delayed union [None]
  - Device damage [None]
  - Pain in extremity [None]
